FAERS Safety Report 5755028-6 (Version None)
Quarter: 2008Q2

REPORT INFORMATION
  Report Type: 
  Country: None (occurrence: None)
  Receive Date: 20080527
  Receipt Date: 20080507
  Transmission Date: 20081010
  Serious: Yes (Death)
  Sender: FDA-Public Use
  Company Number: 2008AL003988

PATIENT
  Sex: Male

DRUGS (1)
  1. DIGOXIN [Suspect]
     Dosage: .25 MG PO
     Route: 048
     Dates: start: 20080321

REACTIONS (2)
  - ANGINA PECTORIS [None]
  - FEELING ABNORMAL [None]
